FAERS Safety Report 5284868-5 (Version None)
Quarter: 2007Q1

REPORT INFORMATION
  Report Type: 
  Country: None (occurrence: None)
  Receive Date: 20061229
  Receipt Date: 20060209
  Transmission Date: 20070707
  Serious: Yes (Life-Threatening, Hospitalization, Other)
  Sender: FDA-Public Use
  Company Number: PHEH2006US01794

PATIENT
  Age: 57 Year
  Sex: Male
  Weight: 79.8 kg

DRUGS (6)
  1. CLOZARIL [Suspect]
     Indication: SCHIZOPHRENIA
     Dosage: 300MG QAM, 400MG QPM, ORAL
     Route: 048
     Dates: start: 19940101, end: 20060129
  2. LEVAQUIN [Concomitant]
  3. FLAGYL [Concomitant]
  4. ROCEPHIN [Concomitant]
  5. PROTONIX [Concomitant]
  6. PROZAC [Concomitant]

REACTIONS (13)
  - ASTHENIA [None]
  - BLOOD CREATINE PHOSPHOKINASE INCREASED [None]
  - BLOOD CREATININE INCREASED [None]
  - BLOOD GLUCOSE INCREASED [None]
  - BLOOD POTASSIUM INCREASED [None]
  - BLOOD UREA INCREASED [None]
  - CONVULSION [None]
  - HYPERHIDROSIS [None]
  - MENTAL STATUS CHANGES [None]
  - MYOCLONUS [None]
  - NEUROLEPTIC MALIGNANT SYNDROME [None]
  - PYREXIA [None]
  - RHABDOMYOLYSIS [None]
